FAERS Safety Report 20786300 (Version 1)
Quarter: 2022Q2

REPORT INFORMATION
  Report Type: Spontaneous
  Country: US (occurrence: None)
  Receive Date: 20220504
  Receipt Date: 20220504
  Transmission Date: 20220720
  Serious: No
  Sender: FDA-Public Use
  Company Number: US-ROCHE-3017513

PATIENT
  Sex: Male
  Weight: 108.96 kg

DRUGS (1)
  1. OCREVUS [Suspect]
     Active Substance: OCRELIZUMAB
     Indication: Secondary progressive multiple sclerosis
     Dosage: 1ST OF 2 DOSES
     Route: 042
     Dates: start: 20220125

REACTIONS (1)
  - Asthenia [Not Recovered/Not Resolved]
